FAERS Safety Report 7931531-5 (Version None)
Quarter: 2011Q4

REPORT INFORMATION
  Report Type: 
  Country: None (occurrence: None)
  Receive Date: 20111121
  Receipt Date: 20111121
  Transmission Date: 20120403
  Serious: Yes (Life-Threatening, Other)
  Sender: FDA-Public Use
  Company Number: None

PATIENT
  Age: 47 Year
  Sex: Female
  Weight: 63.502 kg

DRUGS (1)
  1. SEROQUEL [Suspect]
     Indication: MAJOR DEPRESSION
     Dosage: 900 MG
     Route: 048
     Dates: start: 20080404, end: 20111116

REACTIONS (5)
  - FEELING ABNORMAL [None]
  - CONFUSIONAL STATE [None]
  - DYSPNOEA [None]
  - GLUCOSE TOLERANCE IMPAIRED [None]
  - DYSPHAGIA [None]
